FAERS Safety Report 9840946 (Version 1)
Quarter: 2013Q4

REPORT INFORMATION
  Report Type: Spontaneous
  Country: US (occurrence: None)
  Receive Date: 20131212
  Receipt Date: 20131212
  Transmission Date: 20140711
  Serious: Yes (Hospitalization)
  Sender: FDA-Public Use
  Company Number: 20130309CINRY4028

PATIENT
  Age: 65 Year
  Sex: Male
  Weight: 103.42 kg

DRUGS (5)
  1. CINRYZE [Suspect]
     Indication: HEREDITARY ANGIOEDEMA
     Dosage: 1000 UNIT, 1 IN 3 D, INVTRAVENOUS
     Route: 042
     Dates: start: 20120628
  2. CINRYZE [Suspect]
     Indication: PROPHYLAXIS
     Dosage: 1000 UNIT, 1 IN 3 D, INVTRAVENOUS
     Route: 042
     Dates: start: 20120628
  3. CINRYZE [Suspect]
     Indication: SWELLING
     Dosage: 1000 UNIT, 1 IN 3 D, INVTRAVENOUS
     Route: 042
     Dates: start: 20120628
  4. FIRAZYR (ICATIBANT ACETATE) (INJECTION FOR INFUSION) (ICATIBANT ACETATE) [Concomitant]
  5. BERINERT (COMPLEMENT C1 ESTERASE INHIBITOR) (INJECTION FOR INFUSION) (COMPLEMENT C1 ESTERASE INHIBITOR) [Concomitant]

REACTIONS (1)
  - Hereditary angioedema [None]
